FAERS Safety Report 11770019 (Version 2)
Quarter: 2015Q4

REPORT INFORMATION
  Report Type: Spontaneous
  Country: US (occurrence: US)
  Receive Date: 20151123
  Receipt Date: 20151123
  Transmission Date: 20160304
  Serious: No
  Sender: FDA-Public Use
  Company Number: US-PERRIGO-14US011281

PATIENT
  Age: 4 Year
  Sex: Male
  Weight: 38 kg

DRUGS (3)
  1. POLYETHYLENE GLYCOL 3350. [Suspect]
     Active Substance: POLYETHYLENE GLYCOL 3350
     Dosage: 1 TEASPOON, QD
     Route: 048
     Dates: start: 20141027
  2. SINGULAIR [Concomitant]
     Active Substance: MONTELUKAST SODIUM
     Indication: HYPERSENSITIVITY
     Dosage: UNK
     Route: 065
     Dates: start: 201310
  3. POLYETHYLENE GLYCOL 3350. [Suspect]
     Active Substance: POLYETHYLENE GLYCOL 3350
     Indication: CONSTIPATION
     Dosage: 1 TABLESPOON, QD
     Route: 048
     Dates: start: 20141012, end: 20141026

REACTIONS (3)
  - Incorrect drug administration duration [Unknown]
  - No adverse event [Unknown]
  - Drug administered to patient of inappropriate age [Unknown]

NARRATIVE: CASE EVENT DATE: 20141012
